FAERS Safety Report 24276955 (Version 1)
Quarter: 2024Q3

REPORT INFORMATION
  Report Type: Spontaneous
  Country: ES (occurrence: ES)
  Receive Date: 20240903
  Receipt Date: 20240903
  Transmission Date: 20241017
  Serious: Yes (Other)
  Sender: MYLAN
  Company Number: None

PATIENT
  Age: 77 Year
  Sex: Male

DRUGS (4)
  1. AMLODIPINE [Interacting]
     Active Substance: AMLODIPINE BESYLATE
     Indication: Hypertension
     Dosage: 10 MILLIGRAM, QD
     Route: 048
     Dates: start: 20190715, end: 20240625
  2. DILTIAZEM [Interacting]
     Active Substance: DILTIAZEM
     Indication: Ventricular extrasystoles
     Dosage: 120 MILLIGRAM, BID (12 HOURS)
     Route: 048
     Dates: start: 20240622, end: 20240625
  3. IVABRADINE [Interacting]
     Active Substance: IVABRADINE
     Indication: Angina unstable
     Dosage: 2 MILLIGRAM, QD
     Route: 048
     Dates: start: 20160315
  4. ISOSORBIDE MONONITRATE [Interacting]
     Active Substance: ISOSORBIDE MONONITRATE
     Indication: Angina unstable
     Dosage: 40 MILLIGRAM, QD
     Route: 048
     Dates: start: 20240620

REACTIONS (5)
  - Orthostatic hypotension [Recovered/Resolved]
  - Renal failure [Recovered/Resolved]
  - Bradycardia [Recovered/Resolved]
  - Vomiting [Recovered/Resolved]
  - Drug interaction [Unknown]

NARRATIVE: CASE EVENT DATE: 20240622
